FAERS Safety Report 9506139 (Version 1)
Quarter: 2013Q1

REPORT INFORMATION
  Report Type: Spontaneous
  Country: US (occurrence: None)
  Receive Date: 20130305
  Receipt Date: 20130305
  Transmission Date: 20140127
  Serious: Yes (Hospitalization)
  Sender: FDA-Public Use
  Company Number: 163-21880-11093469

PATIENT
  Age: 79 Year
  Sex: Female
  Weight: 61.6 kg

DRUGS (11)
  1. REVLIMID [Suspect]
     Indication: PLASMA CELL MYELOMA
     Dosage: MONDAY, WEDNESDAY, FRIDAY X 21 DAYS
     Route: 048
     Dates: start: 20100430, end: 20110926
  2. ATENOLOL [Concomitant]
  3. DEXAMETHASONE [Concomitant]
  4. FELODIPINE [Concomitant]
  5. GLIMEPIRIDE [Concomitant]
  6. MEDROL [Concomitant]
  7. PREDNISONE [Concomitant]
  8. SIMVASTATIN [Concomitant]
  9. TRIAMCINOLONE [Concomitant]
  10. VICODIN [Concomitant]
  11. WARFARIN SODIUM [Concomitant]

REACTIONS (3)
  - Diverticular perforation [None]
  - Chest pain [None]
  - Walking aid user [None]
